FAERS Safety Report 8336551-7 (Version None)
Quarter: 2012Q2

REPORT INFORMATION
  Report Type: 
  Country: None (occurrence: None)
  Receive Date: 20120504
  Receipt Date: 20111208
  Transmission Date: 20120825
  Serious: Yes (Other)
  Sender: FDA-Public Use
  Company Number: CA-JNJFOC-20111205237

PATIENT
  Sex: Female

DRUGS (8)
  1. METHOTREXATE [Concomitant]
  2. SIMPONI [Suspect]
     Indication: RHEUMATOID ARTHRITIS
     Route: 058
     Dates: start: 20111020
  3. SYNTHROID [Concomitant]
  4. VITAMIN B-12 [Concomitant]
  5. PLAQUENIL [Concomitant]
  6. ALLOPURINOL [Concomitant]
  7. BISOPROLOL FUMARATE [Concomitant]
  8. COLCHICINE [Concomitant]

REACTIONS (1)
  - DIVERTICULITIS [None]
